FAERS Safety Report 13334277 (Version 2)
Quarter: 2017Q2

REPORT INFORMATION
  Report Type: Spontaneous
  Country: TH (occurrence: TH)
  Receive Date: 20170314
  Receipt Date: 20170522
  Transmission Date: 20170830
  Serious: Yes (Death, Hospitalization)
  Sender: FDA-Public Use
  Company Number: TH-PFIZER INC-2017062436

PATIENT
  Age: 35 Year
  Sex: Male

DRUGS (1)
  1. SUTENT [Suspect]
     Active Substance: SUNITINIB MALATE
     Indication: METASTATIC RENAL CELL CARCINOMA
     Dosage: 50 MG, 1X/DAY (12.5 MG, 4 CAPSULES ONCE DAILY)
     Route: 048
     Dates: start: 20170109

REACTIONS (4)
  - Urinary tract infection [Fatal]
  - Septic shock [Fatal]
  - Vomiting [Recovering/Resolving]
  - Neoplasm progression [Fatal]

NARRATIVE: CASE EVENT DATE: 20170205
